FAERS Safety Report 4451865-9 (Version None)
Quarter: 2004Q3

REPORT INFORMATION
  Report Type: 
  Country: None (occurrence: None)
  Receive Date: 20040915
  Receipt Date: 20040915
  Transmission Date: 20050211
  Serious: Yes (Death)
  Sender: FDA-Public Use
  Company Number: None

PATIENT
  Age: 5 Year
  Sex: Male
  Weight: 22.5 kg

DRUGS (4)
  1. METHOTREXATE [Suspect]
     Indication: ACUTE LYMPHOCYTIC LEUKAEMIA
     Dosage: 20MG/M2/PO
     Route: 048
     Dates: start: 20040521
  2. MERCAPTOPURINE [Suspect]
     Dosage: 75MG/M2 PO
     Route: 048
     Dates: start: 20040524
  3. PREDNISONE [Concomitant]
  4. VINCRISTINE [Concomitant]

REACTIONS (13)
  - AGITATION [None]
  - ASPIRATION BONE MARROW ABNORMAL [None]
  - BRAIN DEATH [None]
  - CENTRAL NERVOUS SYSTEM NEOPLASM [None]
  - CEREBRAL INFARCTION [None]
  - CONVULSION [None]
  - DEPRESSED LEVEL OF CONSCIOUSNESS [None]
  - ENCEPHALITIS [None]
  - HYDROCEPHALUS [None]
  - INCOHERENT [None]
  - MENINGITIS [None]
  - MENTAL STATUS CHANGES [None]
  - POSTURING [None]
